FAERS Safety Report 12815740 (Version 1)
Quarter: 2016Q4

REPORT INFORMATION
  Report Type: Report from Study
  Country: IN (occurrence: IN)
  Receive Date: 20161005
  Receipt Date: 20161005
  Transmission Date: 20170207
  Serious: Yes (Death, Hospitalization)
  Sender: FDA-Public Use
  Company Number: IN-B.I. PHARMACEUTICALS,INC./RIDGEFIELD-2013-CS-00224CS

PATIENT
  Age: 28 Year
  Sex: Female
  Weight: 64 kg

DRUGS (2)
  1. BIBW 2992 [Suspect]
     Active Substance: AFATINIB
     Indication: BREAST CANCER
     Route: 048
     Dates: start: 20120613, end: 20130218
  2. VINORELBINE [Suspect]
     Active Substance: VINORELBINE\VINORELBINE TARTRATE
     Indication: BREAST CANCER
     Dosage: 50 MG/5ML
     Route: 042
     Dates: start: 20121124, end: 20130209

REACTIONS (3)
  - Respiratory arrest [Fatal]
  - Dyspnoea [Unknown]
  - Breast cancer metastatic [Fatal]

NARRATIVE: CASE EVENT DATE: 20130218
